FAERS Safety Report 19310078 (Version 1)
Quarter: 2021Q2

REPORT INFORMATION
  Report Type: Spontaneous
  Country: GB (occurrence: GB)
  Receive Date: 20210526
  Receipt Date: 20210526
  Transmission Date: 20210717
  Serious: Yes (Other)
  Sender: FDA-Public Use
  Company Number: GB-PFIZER INC-2021535025

PATIENT
  Age: 59 Year
  Sex: Female
  Weight: 50 kg

DRUGS (2)
  1. TOZINAMERAN. [Suspect]
     Active Substance: TOZINAMERAN
     Indication: COVID-19 IMMUNISATION
     Dosage: UNKNOWN, SINGLE
     Dates: start: 20210506, end: 20210506
  2. SAYANA PRESS [Suspect]
     Active Substance: MEDROXYPROGESTERONE\MEDROXYPROGESTERONE ACETATE
     Dosage: UNK
     Dates: start: 20210217

REACTIONS (7)
  - Lethargy [Unknown]
  - Nausea [Unknown]
  - Headache [Unknown]
  - Nasal congestion [Unknown]
  - Pyrexia [Recovered/Resolved]
  - Fatigue [Unknown]
  - Body temperature abnormal [Not Recovered/Not Resolved]

NARRATIVE: CASE EVENT DATE: 202105
